FAERS Safety Report 9501986 (Version 2)
Quarter: 2013Q3

REPORT INFORMATION
  Report Type: Spontaneous
  Country: DE (occurrence: DE)
  Receive Date: 20130905
  Receipt Date: 20130905
  Transmission Date: 20140515
  Serious: Yes (Other)
  Sender: FDA-Public Use
  Company Number: DE-GILEAD-2013-0078279

PATIENT
  Age: 77 Year
  Sex: Male

DRUGS (7)
  1. RANOLAZINE [Suspect]
     Indication: ANGINA PECTORIS
     Dosage: 500 MG, QD
     Route: 048
     Dates: start: 20130515, end: 20130803
  2. RANOLAZINE [Suspect]
     Dosage: 500 MG, QD
     Route: 048
     Dates: start: 20130824, end: 20130824
  3. XARELTO [Concomitant]
     Dosage: 2 MG, QD
     Dates: start: 201209
  4. MOLSIDOMIN [Concomitant]
  5. BISOPROLOL [Concomitant]
     Indication: HYPERTENSION
     Dosage: 2 DF, UNK
  6. ATORVASTATIN [Concomitant]
     Dosage: 1 DF, UNK
     Dates: start: 201305
  7. NITROSPRAY [Concomitant]
     Indication: ANGINA PECTORIS

REACTIONS (8)
  - Dyspnoea [Unknown]
  - Anxiety [Unknown]
  - Diarrhoea [Unknown]
  - Dizziness [Unknown]
  - Nausea [Unknown]
  - Vomiting [Unknown]
  - Asthenia [Unknown]
  - Dry mouth [Unknown]
